FAERS Safety Report 10667293 (Version 2)
Quarter: 2015Q1

REPORT INFORMATION
  Report Type: Spontaneous
  Country: JP (occurrence: JP)
  Receive Date: 20141222
  Receipt Date: 20150116
  Transmission Date: 20150720
  Serious: Yes (Hospitalization)
  Sender: FDA-Public Use
  Company Number: PHHY2014JP163794

PATIENT
  Age: 64 Year
  Sex: Female

DRUGS (1)
  1. AFINITOR [Suspect]
     Active Substance: EVEROLIMUS
     Indication: BREAST CANCER METASTATIC
     Dosage: 10 MG, DAILY
     Route: 048
     Dates: start: 20141027, end: 20141201

REACTIONS (3)
  - Salivary duct inflammation [Unknown]
  - Salivary gland disorder [Unknown]
  - Salivary gland calculus [Recovered/Resolved]

NARRATIVE: CASE EVENT DATE: 20141201
